FAERS Safety Report 6438636-9 (Version None)
Quarter: 2009Q4

REPORT INFORMATION
  Report Type: 
  Country: None (occurrence: None)
  Receive Date: 20091110
  Receipt Date: 20091026
  Transmission Date: 20100525
  Serious: Yes (Death, Hospitalization)
  Sender: FDA-Public Use
  Company Number: 2009AC000193

PATIENT
  Age: 80 Year
  Sex: Female

DRUGS (17)
  1. DIGOXIN [Suspect]
     Dosage: 0.125 MG; MWF; PO
     Route: 048
     Dates: start: 20060101
  2. EFFEXOR [Concomitant]
  3. REVATIO [Concomitant]
  4. PEPCID [Concomitant]
  5. ASPIRIN [Concomitant]
  6. LASIX [Concomitant]
  7. ENABLEX [Concomitant]
  8. VERSED [Concomitant]
  9. FENTANYL-100 [Concomitant]
  10. ATENOLOL [Concomitant]
  11. CRESTOR [Concomitant]
  12. ATACAND [Concomitant]
  13. ACIPHEX [Concomitant]
  14. METOCLOPRAMIDE [Concomitant]
  15. POTASSIUM CHLORIDE [Concomitant]
  16. ENABLEX [Concomitant]
  17. AVELOX [Concomitant]

REACTIONS (30)
  - AMNESIA [None]
  - ASTHENIA [None]
  - ATRIOVENTRICULAR BLOCK [None]
  - CARDIAC MURMUR [None]
  - CARDIAC OUTPUT DECREASED [None]
  - COLONIC POLYP [None]
  - CONJUNCTIVITIS [None]
  - DYSPNOEA EXERTIONAL [None]
  - ECONOMIC PROBLEM [None]
  - EMOTIONAL DISORDER [None]
  - FALL [None]
  - FAMILY STRESS [None]
  - FATIGUE [None]
  - HYPOXIA [None]
  - MITRAL VALVE PROLAPSE [None]
  - MULTIPLE INJURIES [None]
  - NAUSEA [None]
  - OEDEMA PERIPHERAL [None]
  - OESOPHAGITIS [None]
  - PAIN [None]
  - PNEUMONIA [None]
  - QRS AXIS ABNORMAL [None]
  - RENAL FAILURE [None]
  - SOCIAL PROBLEM [None]
  - SYNCOPE [None]
  - UNEVALUABLE EVENT [None]
  - URINARY TRACT INFECTION [None]
  - VASCULAR RESISTANCE SYSTEMIC INCREASED [None]
  - VOMITING [None]
  - WEIGHT DECREASED [None]
